FAERS Safety Report 8022684-1 (Version None)
Quarter: 2012Q1

REPORT INFORMATION
  Report Type: 
  Country: None (occurrence: None)
  Receive Date: 20120104
  Receipt Date: 20111229
  Transmission Date: 20120608
  Serious: Yes (Life-Threatening, Hospitalization, Other)
  Sender: FDA-Public Use
  Company Number: DE-ABBOTT-12P-062-0888349-00

PATIENT
  Age: 40 Year
  Sex: Male
  Weight: 67 kg

DRUGS (6)
  1. KALETRA [Suspect]
     Indication: HIV INFECTION
     Dates: start: 20100515
  2. ATOVAQUONE [Concomitant]
     Indication: PRODUCT USED FOR UNKNOWN INDICATION
     Route: 048
     Dates: start: 20110805
  3. TRUVADA [Concomitant]
     Indication: PRODUCT USED FOR UNKNOWN INDICATION
     Dosage: 245 MG / 200 MG
     Route: 048
     Dates: start: 20100515
  4. COTRIM [Concomitant]
     Indication: PRODUCT USED FOR UNKNOWN INDICATION
     Route: 048
     Dates: start: 20110721
  5. LEVETIRACETAM [Concomitant]
     Indication: EPILEPSY
     Route: 048
     Dates: start: 20110805
  6. PENTACARINAT [Concomitant]
     Indication: ANTIFUNGAL PROPHYLAXIS
     Dates: start: 20110101

REACTIONS (2)
  - PROGRESSIVE MULTIFOCAL LEUKOENCEPHALOPATHY [None]
  - CREUTZFELDT-JAKOB DISEASE [None]
